FAERS Safety Report 23679961 (Version 2)
Quarter: 2024Q3

REPORT INFORMATION
  Report Type: Report from Study
  Country: CA (occurrence: CA)
  Receive Date: 20240327
  Receipt Date: 20240911
  Transmission Date: 20241017
  Serious: No
  Sender: SANDOZ
  Company Number: CA-002147023-NVSC2022CA171873

PATIENT
  Sex: Female

DRUGS (10)
  1. HYRIMOZ [Suspect]
     Active Substance: ADALIMUMAB-ADAZ
     Indication: Crohn^s disease
     Dosage: 40 MG, Q2W (40 MG / 0.8 ML (PEN))
     Route: 058
     Dates: start: 20220722
  2. HYRIMOZ [Suspect]
     Active Substance: ADALIMUMAB-ADAZ
     Indication: Ankylosing spondylitis
     Dosage: 50 MG, QW
     Route: 058
  3. CYANOCOBALAMIN [Concomitant]
     Active Substance: CYANOCOBALAMIN
     Indication: Product used for unknown indication
     Dosage: UNK
     Route: 065
  4. DEXILANT [Concomitant]
     Active Substance: DEXLANSOPRAZOLE
     Indication: Product used for unknown indication
     Dosage: UNK
     Route: 065
  5. DOMPERIDONE [Concomitant]
     Active Substance: DOMPERIDONE
     Indication: Product used for unknown indication
     Dosage: UNK
     Route: 065
  6. ERELZI [Concomitant]
     Active Substance: ETANERCEPT-SZZS
     Indication: Ankylosing spondylitis
     Dosage: 25 MG, Q2W
     Route: 058
     Dates: start: 20220719
  7. ERELZI [Concomitant]
     Active Substance: ETANERCEPT-SZZS
     Dosage: 50 MG
     Route: 058
     Dates: start: 20220101
  8. ESTRADIOL [Concomitant]
     Active Substance: ESTRADIOL
     Indication: Product used for unknown indication
     Dosage: UNK
     Route: 065
  9. METHOTREXATE [Concomitant]
     Active Substance: METHOTREXATE
     Indication: Product used for unknown indication
     Dosage: UNK
     Route: 065
  10. SYNTHROID [Concomitant]
     Active Substance: LEVOTHYROXINE SODIUM
     Indication: Product used for unknown indication
     Dosage: UNK
     Route: 065

REACTIONS (8)
  - Joint swelling [Unknown]
  - Drug level increased [Unknown]
  - Pain [Unknown]
  - Arthralgia [Unknown]
  - Arthritis [Unknown]
  - Injection site pain [Unknown]
  - Therapeutic product effect incomplete [Unknown]
  - Off label use [Unknown]

NARRATIVE: CASE EVENT DATE: 20220101
